FAERS Safety Report 11371825 (Version 2)
Quarter: 2016Q3

REPORT INFORMATION
  Report Type: Spontaneous
  Country: US (occurrence: US)
  Receive Date: 20150812
  Receipt Date: 20160805
  Transmission Date: 20161109
  Serious: Yes (Hospitalization, Other)
  Sender: FDA-Public Use
  Company Number: US-BAYER-2015-392452

PATIENT
  Age: 53 Year
  Sex: Male
  Weight: 117.91 kg

DRUGS (18)
  1. FISH OIL [Concomitant]
     Active Substance: FISH OIL
  2. TESTOSTERONE. [Concomitant]
     Active Substance: TESTOSTERONE
     Indication: BLOOD TESTOSTERONE DECREASED
     Dosage: 200 MG, Q2WK
     Route: 048
  3. CHONDROITIN SULFATE [Concomitant]
     Active Substance: SODIUM CHONDROITIN SULFATE
  4. METHYLCELLULOSE [Concomitant]
     Active Substance: METHYLCELLULOSES
  5. AVELOX [Suspect]
     Active Substance: MOXIFLOXACIN HYDROCHLORIDE
     Indication: SINUSITIS
     Dosage: 400 MG, UNK
     Route: 048
     Dates: start: 20070810, end: 20070824
  6. GEMFIBROZIL. [Concomitant]
     Active Substance: GEMFIBROZIL
     Indication: BLOOD TRIGLYCERIDES DECREASED
     Dosage: 600 MG, BID
     Route: 048
  7. AVELOX [Suspect]
     Active Substance: MOXIFLOXACIN HYDROCHLORIDE
     Indication: SINUSITIS
     Dosage: 400 MG, UNK
     Dates: start: 20080810
  8. BENADRYL [Concomitant]
     Active Substance: DIPHENHYDRAMINE HYDROCHLORIDE
  9. NASONEX [Concomitant]
     Active Substance: MOMETASONE FUROATE
  10. AVELOX [Suspect]
     Active Substance: MOXIFLOXACIN HYDROCHLORIDE
     Indication: SINUSITIS
     Dosage: 400 MG, UNK
     Route: 048
     Dates: start: 20070725, end: 20070810
  11. AVELOX [Suspect]
     Active Substance: MOXIFLOXACIN HYDROCHLORIDE
     Indication: SINUSITIS
     Dosage: 400 MG, UNK
     Route: 048
     Dates: start: 20070810, end: 20070824
  12. GLUCOSAMINE [Concomitant]
     Active Substance: GLUCOSAMINE
  13. ZOLOFT [Concomitant]
     Active Substance: SERTRALINE HYDROCHLORIDE
  14. LEVAQUIN [Suspect]
     Active Substance: LEVOFLOXACIN
     Indication: SINUSITIS
     Dosage: 500 MG, UNK
     Route: 048
     Dates: start: 20090105, end: 20090129
  15. FLONASE [Concomitant]
     Active Substance: FLUTICASONE PROPIONATE
  16. ASPIRIN. [Concomitant]
     Active Substance: ASPIRIN
  17. CYANOCOBALAMIN. [Concomitant]
     Active Substance: CYANOCOBALAMIN
  18. ZYRTEC [CETIRIZINE HYDROCHLORIDE] [Concomitant]

REACTIONS (9)
  - Injury [None]
  - Pain [None]
  - Activities of daily living impaired [None]
  - Emotional distress [None]
  - Anxiety [None]
  - Neuropathy peripheral [Not Recovered/Not Resolved]
  - Fall [None]
  - Anhedonia [None]
  - Hypoaesthesia [Not Recovered/Not Resolved]

NARRATIVE: CASE EVENT DATE: 20090107
